FAERS Safety Report 9380146 (Version 2)
Quarter: 2013Q3

REPORT INFORMATION
  Report Type: Spontaneous
  Country: JP (occurrence: JP)
  Receive Date: 20130702
  Receipt Date: 20130716
  Transmission Date: 20140515
  Serious: Yes (Death, Hospitalization, Other)
  Sender: FDA-Public Use
  Company Number: JP-PFIZER INC-2013100757

PATIENT
  Age: 86 Year
  Sex: Female
  Weight: 59.6 kg

DRUGS (10)
  1. RHEUMATREX [Suspect]
     Indication: RHEUMATOID ARTHRITIS
     Dosage: 4 MG, WEEKLY
     Route: 048
     Dates: start: 20100331, end: 20130325
  2. SOLU-MEDROL [Suspect]
     Indication: INTERSTITIAL LUNG DISEASE
     Dosage: 1000 MG,DAILY
     Route: 042
     Dates: start: 20130325, end: 20130327
  3. NEORAL [Suspect]
     Indication: INTERSTITIAL LUNG DISEASE
     Dosage: 180 MG DAILY
     Route: 042
     Dates: start: 20130330, end: 20130422
  4. RIMATIL [Concomitant]
     Indication: RHEUMATOID ARTHRITIS
     Dosage: 100 MG, 3X/DAY
     Route: 048
     Dates: start: 20090707, end: 20130325
  5. METHYCOBAL [Concomitant]
     Indication: LUMBAR SPINAL STENOSIS
     Dosage: 500 UG, 3X/DAY
     Route: 048
     Dates: start: 20090707, end: 20130325
  6. FOLIAMIN [Concomitant]
     Indication: RHEUMATOID ARTHRITIS
     Dosage: 5 MG, 1X/DAY
     Route: 048
     Dates: start: 20100331, end: 20130325
  7. OPALMON [Concomitant]
     Indication: LUMBAR SPINAL STENOSIS
     Dosage: 5 MG, 3X/DAY
     Route: 048
     Dates: start: 20090707, end: 20130325
  8. VIVIANT [Concomitant]
     Indication: OSTEOPOROSIS
     Dosage: 20 MG, 1X/DAY
     Route: 048
     Dates: start: 20120926, end: 20130325
  9. ATELEC [Concomitant]
     Dosage: UNK
  10. PROMAC [Suspect]
     Dosage: UNK

REACTIONS (7)
  - Interstitial lung disease [Fatal]
  - Pneumonia bacterial [Fatal]
  - Right ventricular failure [Unknown]
  - Diabetes mellitus [Unknown]
  - Renal failure acute [Unknown]
  - Hypertension [Unknown]
  - Oral candidiasis [Unknown]
